FAERS Safety Report 21676573 (Version 4)
Quarter: 2022Q4

REPORT INFORMATION
  Report Type: Report from Study
  Country: CA (occurrence: CA)
  Receive Date: 20221202
  Receipt Date: 20221230
  Transmission Date: 20230112
  Serious: Yes (Hospitalization, Other)
  Sender: FDA-Public Use
  Company Number: CA-HLS-202202144

PATIENT
  Age: 59 Year
  Sex: Male
  Weight: 61 kg

DRUGS (5)
  1. CLOZARIL [Suspect]
     Active Substance: CLOZAPINE
     Indication: Product used for unknown indication
     Dosage: 100 MG THREE TIMES A DAY AND 200 MG AT BEDTIME
     Route: 048
     Dates: start: 19991129
  2. COLACE [Concomitant]
     Active Substance: DOCUSATE SODIUM
     Indication: Product used for unknown indication
     Route: 065
  3. RIVOTRIL [Concomitant]
     Active Substance: CLONAZEPAM
     Indication: Product used for unknown indication
     Route: 065
  4. DEXILANT [Concomitant]
     Active Substance: DEXLANSOPRAZOLE
     Indication: Product used for unknown indication
     Route: 065
  5. SENOKOT [Concomitant]
     Active Substance: SENNOSIDES
     Indication: Product used for unknown indication
     Route: 065

REACTIONS (12)
  - Hypotension [Recovered/Resolved]
  - Spleen disorder [Unknown]
  - Dyspepsia [Unknown]
  - Fatigue [Unknown]
  - Heart rate increased [Recovered/Resolved]
  - Influenza [Recovering/Resolving]
  - Weight decreased [Unknown]
  - Neutrophil count decreased [Recovering/Resolving]
  - Non-Hodgkin^s lymphoma [Unknown]
  - Lymphadenopathy [Unknown]
  - Bone lesion [Unknown]
  - Vomiting [Unknown]

NARRATIVE: CASE EVENT DATE: 20160101
